FAERS Safety Report 25442437 (Version 3)
Quarter: 2025Q4

REPORT INFORMATION
  Report Type: Report from Study
  Country: US (occurrence: US)
  Receive Date: 20250617
  Receipt Date: 20251003
  Transmission Date: 20260117
  Serious: Yes (Other)
  Sender: MALLINCKRODT
  Company Number: US-MALLINCKRODT-MNK202503447

PATIENT
  Age: 60 Year
  Sex: Female

DRUGS (10)
  1. CORTICOTROPIN [Suspect]
     Active Substance: CORTICOTROPIN
     Indication: Scleritis
     Dosage: 80 UNITS
     Route: 058
     Dates: start: 20250218
  2. METHOTREXATE [Concomitant]
     Active Substance: METHOTREXATE
     Dosage: 8 PILLS
  3. METHOTREXATE [Concomitant]
     Active Substance: METHOTREXATE
     Dosage: UNKNOWN
  4. HADLIMA [Concomitant]
     Active Substance: ADALIMUMAB-BWWD
     Dosage: UNKNOWN
  5. PILOCARPINE [Concomitant]
     Active Substance: PILOCARPINE
     Dosage: UNKNOWN
  6. PILOCARPINE [Concomitant]
     Active Substance: PILOCARPINE
     Dosage: UNKNOWN
  7. SODIUM FLUORIDE\SODIUM MONOFLUOROPHOSPHATE [Concomitant]
     Active Substance: SODIUM FLUORIDE\SODIUM MONOFLUOROPHOSPHATE
     Dosage: UNKNOWN
  8. MENTHOL [Concomitant]
     Active Substance: MENTHOL
     Dosage: UNKNOWN
  9. FOLIC ACID [Concomitant]
     Active Substance: FOLIC ACID
     Dosage: UNKNOWN
  10. REMICADE [Concomitant]
     Active Substance: INFLIXIMAB
     Dosage: UNKNOWN

REACTIONS (9)
  - Scleritis [Not Recovered/Not Resolved]
  - Condition aggravated [Not Recovered/Not Resolved]
  - Memory impairment [Not Recovered/Not Resolved]
  - Dyspnoea [Unknown]
  - Dizziness [Not Recovered/Not Resolved]
  - Nausea [Unknown]
  - Vitreous floaters [Recovering/Resolving]
  - Mood swings [Not Recovered/Not Resolved]
  - Drug ineffective [Unknown]

NARRATIVE: CASE EVENT DATE: 20250101
